FAERS Safety Report 22638328 (Version 11)
Quarter: 2024Q2

REPORT INFORMATION
  Report Type: Spontaneous
  Country: US (occurrence: US)
  Receive Date: 20230626
  Receipt Date: 20240531
  Transmission Date: 20240715
  Serious: Yes (Other)
  Sender: FDA-Public Use
  Company Number: US-002147023-NVSC2023US143981

PATIENT
  Age: 68 Year
  Sex: Female

DRUGS (1)
  1. KESIMPTA [Suspect]
     Active Substance: OFATUMUMAB
     Indication: Relapsing multiple sclerosis
     Dosage: UNK
     Route: 065
     Dates: start: 20230206

REACTIONS (18)
  - Dementia [Unknown]
  - Respiratory distress [Unknown]
  - Dyspnoea [Unknown]
  - Sciatica [Unknown]
  - Dizziness [Recovering/Resolving]
  - Constipation [Unknown]
  - Weight increased [Unknown]
  - COVID-19 [Not Recovered/Not Resolved]
  - Cough [Unknown]
  - Ageusia [Unknown]
  - Anosmia [Unknown]
  - Joint effusion [Unknown]
  - Pain in extremity [Unknown]
  - Malaise [Unknown]
  - Melanocytic naevus [Unknown]
  - Paraesthesia [Unknown]
  - Hypoaesthesia [Unknown]
  - Musculoskeletal stiffness [Unknown]
